FAERS Safety Report 7473005-4 (Version None)
Quarter: 2011Q2

REPORT INFORMATION
  Report Type: 
  Country: None (occurrence: None)
  Receive Date: 20110511
  Receipt Date: 20110509
  Transmission Date: 20111010
  Serious: Yes (Death, Other)
  Sender: FDA-Public Use
  Company Number: PHHY2011AR38811

PATIENT
  Sex: Female

DRUGS (1)
  1. DIOVAN [Suspect]
     Dosage: 160 MG

REACTIONS (3)
  - CARDIO-RESPIRATORY ARREST [None]
  - PARKINSON'S DISEASE [None]
  - DEMENTIA ALZHEIMER'S TYPE [None]
